FAERS Safety Report 24737273 (Version 8)
Quarter: 2025Q3

REPORT INFORMATION
  Report Type: Report from Study
  Country: US (occurrence: US)
  Receive Date: 20241216
  Receipt Date: 20250917
  Transmission Date: 20251020
  Serious: Yes (Other)
  Sender: SUNOVION
  Company Number: US-SMPA-2024SPA005807AA

PATIENT
  Age: 76 Year
  Sex: Male

DRUGS (1)
  1. ORGOVYX [Suspect]
     Active Substance: RELUGOLIX
     Indication: Prostate cancer
     Dosage: 120 MG, QD
     Route: 048
     Dates: start: 20241205

REACTIONS (12)
  - Macular degeneration [Unknown]
  - Blood disorder [Unknown]
  - Hypertonic bladder [Unknown]
  - Urine abnormality [Unknown]
  - Nasal congestion [Unknown]
  - White blood cell count increased [Unknown]
  - Renal disorder [Unknown]
  - Urinary incontinence [Unknown]
  - Asthenia [Unknown]
  - Anaemia [Unknown]
  - Red blood cell count decreased [Unknown]
  - Incorrect dose administered [Recovered/Resolved]
